FAERS Safety Report 10762278 (Version 1)
Quarter: 2015Q1

REPORT INFORMATION
  Report Type: Spontaneous
  Country: US (occurrence: None)
  Receive Date: 20150129
  Receipt Date: 20150129
  Transmission Date: 20150721
  Serious: Yes (Other)
  Sender: FDA-Public Use
  Company Number: 121115

PATIENT
  Sex: Female
  Weight: 102.5 kg

DRUGS (11)
  1. VICODIN (HYDROCODONE BITARTRATE; PARACETAMOL) TABLET [Concomitant]
  2. ZOLOFT [Concomitant]
     Active Substance: SERTRALINE HYDROCHLORIDE
  3. LIPITOR [Concomitant]
     Active Substance: ATORVASTATIN CALCIUM
  4. VIMPAT [Suspect]
     Active Substance: LACOSAMIDE
     Indication: SEIZURE
     Route: 048
  5. BACTRIM (SULFAMETHOXAZOLE; TRIMETHOPRIM) TABLET [Concomitant]
  6. APIDRA [Concomitant]
     Active Substance: INSULIN GLULISINE
  7. LANTUS [Concomitant]
     Active Substance: INSULIN GLARGINE
  8. KEPPRA [Suspect]
     Active Substance: LEVETIRACETAM
     Indication: SEIZURE
     Route: 048
     Dates: start: 2012
  9. XANAX [Concomitant]
     Active Substance: ALPRAZOLAM
  10. ZANTAC [Concomitant]
     Active Substance: RANITIDINE HYDROCHLORIDE
  11. ASPIRIN (ACETYLSALICYLIC ACID) [Concomitant]
     Active Substance: ASPIRIN

REACTIONS (1)
  - Partial seizures [None]
